FAERS Safety Report 6275300-3 (Version None)
Quarter: 2009Q3

REPORT INFORMATION
  Report Type: 
  Country: None (occurrence: None)
  Receive Date: 20090721
  Receipt Date: 20090713
  Transmission Date: 20100115
  Serious: Yes (Death, Hospitalization)
  Sender: FDA-Public Use
  Company Number: A0797603A

PATIENT
  Sex: Male

DRUGS (3)
  1. SERETIDE [Suspect]
     Indication: CHRONIC OBSTRUCTIVE PULMONARY DISEASE
     Dosage: 1PUFF TWICE PER DAY
     Dates: start: 20090512, end: 20090617
  2. FORMOTEROL FUMARATE [Concomitant]
     Dates: start: 20060101, end: 20090706
  3. SPIRIVA [Concomitant]
     Dates: start: 20080101, end: 20090706

REACTIONS (2)
  - ADVERSE EVENT [None]
  - CHRONIC OBSTRUCTIVE PULMONARY DISEASE [None]
